FAERS Safety Report 19017590 (Version 2)
Quarter: 2021Q2

REPORT INFORMATION
  Report Type: Spontaneous
  Country: CA (occurrence: CA)
  Receive Date: 20210317
  Receipt Date: 20210525
  Transmission Date: 20210717
  Serious: Yes (Other)
  Sender: FDA-Public Use
  Company Number: CA-CELLTRION INC.-2019CA019919

PATIENT

DRUGS (23)
  1. INFLECTRA [Suspect]
     Active Substance: INFLIXIMAB-DYYB
     Dosage: 800 MG (10MG/KG) AS SOON AS POSSIBLE THEN EVERY 6 WEEKS
     Route: 042
     Dates: start: 20190914
  2. INFLECTRA [Suspect]
     Active Substance: INFLIXIMAB-DYYB
     Dosage: 10 MG/KG, (800 MG) AS SOON AS POSSIBLE, THEN EVERY 6 WEEKS
     Route: 042
     Dates: start: 20200404
  3. INFLECTRA [Suspect]
     Active Substance: INFLIXIMAB-DYYB
     Dosage: 10 MG/KG, (800 MG) AS SOON AS POSSIBLE, THEN EVERY 6 WEEKS
     Route: 042
     Dates: start: 20200916
  4. INFLECTRA [Suspect]
     Active Substance: INFLIXIMAB-DYYB
     Dosage: 800 MG (10MG/KG) AS SOON AS POSSIBLE THEN EVERY 6 WEEKS
     Route: 042
     Dates: start: 20190917
  5. INFLECTRA [Suspect]
     Active Substance: INFLIXIMAB-DYYB
     Dosage: 10 MG/KG, (800 MG) AS SOON AS POSSIBLE, THEN EVERY 6 WEEKS
     Route: 042
     Dates: start: 20200115
  6. INFLECTRA [Suspect]
     Active Substance: INFLIXIMAB-DYYB
     Dosage: 10 MG/KG, (800 MG) AS SOON AS POSSIBLE, THEN EVERY 6 WEEKS
     Route: 042
     Dates: start: 20210123
  7. INFLECTRA [Suspect]
     Active Substance: INFLIXIMAB-DYYB
     Dosage: 10 MG/KG, (800 MG) AS SOON AS POSSIBLE, THEN EVERY 6 WEEKS
     Route: 042
     Dates: start: 20210307
  8. INFLECTRA [Suspect]
     Active Substance: INFLIXIMAB-DYYB
     Dosage: 800 MG (10MG/KG) AS SOON AS POSSIBLE THEN EVERY 6 WEEKS
     Route: 042
     Dates: start: 20190917
  9. INFLECTRA [Suspect]
     Active Substance: INFLIXIMAB-DYYB
     Dosage: 10 MG/KG, (800 MG) AS SOON AS POSSIBLE, THEN EVERY 6 WEEKS
     Route: 042
     Dates: start: 20200807
  10. INFLECTRA [Suspect]
     Active Substance: INFLIXIMAB-DYYB
     Dosage: 10 MG/KG, (800 MG) AS SOON AS POSSIBLE, THEN EVERY 6 WEEKS
     Route: 042
     Dates: start: 20201211
  11. HYDROCORTISONE. [Concomitant]
     Active Substance: HYDROCORTISONE
     Dosage: 100 MG
     Route: 042
     Dates: start: 20200916, end: 20200916
  12. INFLECTRA [Suspect]
     Active Substance: INFLIXIMAB-DYYB
     Dosage: 10 MG/KG, (800 MG) AS SOON AS POSSIBLE, THEN EVERY 6 WEEKS
     Route: 042
     Dates: start: 20200807
  13. INFLECTRA [Suspect]
     Active Substance: INFLIXIMAB-DYYB
     Dosage: 400 MG, 0, 2, 6WEEKS, THEN EVERY 8 WEEKS
     Route: 042
     Dates: start: 20190613
  14. INFLECTRA [Suspect]
     Active Substance: INFLIXIMAB-DYYB
     Dosage: 10 MG/KG, (800 MG) AS SOON AS POSSIBLE, THEN EVERY 6 WEEKS
     Route: 042
     Dates: start: 20191205
  15. INFLECTRA [Suspect]
     Active Substance: INFLIXIMAB-DYYB
     Dosage: 400 MG, 0, 2, 6WEEKS, THEN EVERY 8 WEEKS
     Route: 042
     Dates: start: 20190416
  16. INFLECTRA [Suspect]
     Active Substance: INFLIXIMAB-DYYB
     Dosage: 800 MG (10MG/KG) AS SOON AS POSSIBLE THEN EVERY 6 WEEKS
     Route: 042
     Dates: start: 20190914
  17. INFLECTRA [Suspect]
     Active Substance: INFLIXIMAB-DYYB
     Dosage: 10 MG/KG, (800 MG) AS SOON AS POSSIBLE, THEN EVERY 6 WEEKS
     Route: 042
     Dates: start: 20191025
  18. HYDROCORTISONE. [Concomitant]
     Active Substance: HYDROCORTISONE
     Indication: PREMEDICATION
     Dosage: UNK
     Dates: start: 20200807, end: 20200807
  19. INFLECTRA [Suspect]
     Active Substance: INFLIXIMAB-DYYB
     Dosage: 400 MG, 0, 2, 6WEEKS, THEN EVERY 8 WEEKS
     Route: 042
     Dates: start: 20190315
  20. INFLECTRA [Suspect]
     Active Substance: INFLIXIMAB-DYYB
     Dosage: 10 MG/KG, (800 MG) AS SOON AS POSSIBLE, THEN EVERY 6 WEEKS
     Route: 042
     Dates: start: 20200625
  21. INFLECTRA [Suspect]
     Active Substance: INFLIXIMAB-DYYB
     Indication: CROHN^S DISEASE
     Dosage: 300 MG, 0, 2, 6 WEEKS, THEN EVERY 8 WEEKS
     Route: 042
     Dates: start: 20190301
  22. INFLECTRA [Suspect]
     Active Substance: INFLIXIMAB-DYYB
     Dosage: 400 MG, 0, 2, 6WEEKS, THEN EVERY 8 WEEKS
     Route: 042
     Dates: start: 20190809
  23. INFLECTRA [Suspect]
     Active Substance: INFLIXIMAB-DYYB
     Dosage: 10 MG/KG, (800 MG) AS SOON AS POSSIBLE, THEN EVERY 6 WEEKS
     Route: 042
     Dates: start: 20200229

REACTIONS (16)
  - Therapeutic response unexpected [Unknown]
  - Blood pressure fluctuation [Unknown]
  - Fatigue [Unknown]
  - Rhinorrhoea [Unknown]
  - Incorrect dose administered [Unknown]
  - Abortion spontaneous [Unknown]
  - Cough [Unknown]
  - Off label use [Unknown]
  - Heart rate increased [Not Recovered/Not Resolved]
  - Fistula discharge [Recovered/Resolved]
  - Intentional product use issue [Unknown]
  - Condition aggravated [Not Recovered/Not Resolved]
  - Nasopharyngitis [Recovered/Resolved]
  - Blood pressure increased [Unknown]
  - Heart rate irregular [Unknown]
  - Pyrexia [Unknown]

NARRATIVE: CASE EVENT DATE: 20190301
